FAERS Safety Report 18745513 (Version 1)
Quarter: 2021Q1

REPORT INFORMATION
  Report Type: Spontaneous
  Country: US (occurrence: US)
  Receive Date: 20210114
  Receipt Date: 20210114
  Transmission Date: 20210419
  Serious: Yes (Other)
  Sender: FDA-Public Use
  Company Number: None

PATIENT
  Age: 64 Year
  Sex: Female
  Weight: 78.53 kg

DRUGS (6)
  1. BAMLANIVIMAB. [Suspect]
     Active Substance: BAMLANIVIMAB
     Indication: COVID-19
     Route: 040
     Dates: start: 20210112, end: 20210112
  2. SIMVASTATIN 10MG PO DAILY [Concomitant]
     Dates: start: 20200929
  3. GLIPIZIDE 10MG PO BID [Concomitant]
     Dates: start: 20200929
  4. METFORMIN 1000MG PO BID [Concomitant]
     Dates: start: 20200929
  5. LOSARTAN 100MG PO DAILY [Concomitant]
     Dates: start: 20200929
  6. CHOLECALCIFEROL 50,000 IU WEEKLY [Concomitant]
     Dates: start: 20200929

REACTIONS (2)
  - Infusion related reaction [None]
  - Pyrexia [None]

NARRATIVE: CASE EVENT DATE: 20210112
